FAERS Safety Report 24991129 (Version 1)
Quarter: 2025Q1

REPORT INFORMATION
  Report Type: Spontaneous
  Country: SE (occurrence: SE)
  Receive Date: 20250220
  Receipt Date: 20250220
  Transmission Date: 20250409
  Serious: Yes (Hospitalization, Disabling, Other)
  Sender: FERRING
  Company Number: SE-FERRINGPH-9700196

PATIENT

DRUGS (5)
  1. DESMOPRESSIN ACETATE [Suspect]
     Active Substance: DESMOPRESSIN ACETATE
     Indication: Eye operation
     Dosage: 15 UG, ONCE/SINGLE
     Route: 042
     Dates: start: 19961113, end: 19961113
  2. METOPROLOL [Concomitant]
     Active Substance: METOPROLOL
     Route: 048
     Dates: start: 1964
  3. SYNERPRIL [Concomitant]
     Route: 048
     Dates: start: 199510
  4. ASPIRIN [Concomitant]
     Active Substance: ASPIRIN
     Dosage: 75 MG, DAILY
     Route: 048
     Dates: start: 19961016
  5. HYDROCHLOROTHIAZIDE [Concomitant]
     Active Substance: HYDROCHLOROTHIAZIDE
     Dosage: UNK, DAILY
     Route: 048
     Dates: start: 199510

REACTIONS (8)
  - Hemiplegia [Not Recovered/Not Resolved]
  - Aphasia [Unknown]
  - Hypoaesthesia [Unknown]
  - Personality disorder [Unknown]
  - Speech disorder [Unknown]
  - Muscular weakness [Unknown]
  - Muscular weakness [Unknown]
  - Cerebral ischaemia [Not Recovered/Not Resolved]

NARRATIVE: CASE EVENT DATE: 19951113
